FAERS Safety Report 5788836-6 (Version None)
Quarter: 2008Q2

REPORT INFORMATION
  Report Type: 
  Country: None (occurrence: None)
  Receive Date: 20080626
  Receipt Date: 20080617
  Transmission Date: 20081010
  Serious: Yes (Other)
  Sender: FDA-Public Use
  Company Number: CA-WATSON-2008-03680

PATIENT

DRUGS (2)
  1. METHYLPREDNISOLONE [Suspect]
     Indication: PROPHYLAXIS AGAINST GRAFT VERSUS HOST DISEASE
     Dosage: 429.3 MG/KG, TOTAL
     Route: 065
  2. PREDNISONE (WATSON LABORATORIES) [Suspect]
     Indication: PROPHYLAXIS AGAINST GRAFT VERSUS HOST DISEASE
     Dosage: UNK

REACTIONS (1)
  - CARDIAC HYPERTROPHY [None]
